FAERS Safety Report 15453266 (Version 4)
Quarter: 2019Q1

REPORT INFORMATION
  Report Type: Spontaneous
  Country: JP (occurrence: JP)
  Receive Date: 20181001
  Receipt Date: 20190122
  Transmission Date: 20190417
  Serious: Yes (Life-Threatening)
  Sender: FDA-Public Use
  Company Number: JP-CELGENEUS-JPN-20180909820

PATIENT
  Age: 7 Decade
  Sex: Male

DRUGS (1)
  1. OTEZLA [Suspect]
     Active Substance: APREMILAST
     Indication: PSORIASIS
     Dosage: UNKNOWN
     Route: 048
     Dates: start: 20180105, end: 20181025

REACTIONS (1)
  - Colon cancer [Not Recovered/Not Resolved]
